FAERS Safety Report 4866977-5 (Version None)
Quarter: 2005Q4

REPORT INFORMATION
  Report Type: 
  Country: None (occurrence: None)
  Receive Date: 20051227
  Receipt Date: 20051005
  Transmission Date: 20060501
  Serious: Yes (Disabling)
  Sender: FDA-Public Use
  Company Number: US-MERCK-0510USA04214

PATIENT
  Age: 64 Year
  Sex: Female
  Weight: 77 kg

DRUGS (13)
  1. VIOXX [Suspect]
     Indication: ARTHRITIS
     Route: 048
     Dates: start: 20010101, end: 20040901
  2. ARMOUR THYROID TABLETS [Concomitant]
     Route: 065
  3. ZANTAC [Concomitant]
     Route: 065
  4. PREVACID [Concomitant]
     Route: 065
  5. ZESTRIL [Concomitant]
     Route: 065
  6. PREMARIN [Concomitant]
     Route: 065
  7. GLUCOPHAGE [Concomitant]
     Route: 065
  8. DYAZIDE [Concomitant]
     Route: 065
  9. VITAMINS (UNSPECIFIED) [Concomitant]
     Route: 065
  10. VERAPAMIL [Concomitant]
     Route: 065
  11. AMITRIPTYLINE HYDROCHLORIDE [Concomitant]
     Route: 065
  12. [THERAPY UNSPECIFIED] [Concomitant]
     Route: 065
  13. URSO [Concomitant]
     Route: 065

REACTIONS (5)
  - BILIARY CIRRHOSIS PRIMARY [None]
  - CHEST PAIN [None]
  - HYPERGLYCAEMIA [None]
  - NON-CARDIAC CHEST PAIN [None]
  - PALPITATIONS [None]
